FAERS Safety Report 6467290-5 (Version None)
Quarter: 2009Q4

REPORT INFORMATION
  Report Type: 
  Country: None (occurrence: None)
  Receive Date: 20091130
  Receipt Date: 20091111
  Transmission Date: 20100525
  Serious: Yes (Other)
  Sender: FDA-Public Use
  Company Number: 2009AP003903

PATIENT
  Age: 44 Year
  Sex: Female

DRUGS (2)
  1. KETOTIFEN FUMARATE [Suspect]
     Indication: EYE PAIN
     Dosage: 1 GTT;QD; OPH
     Route: 047
     Dates: start: 20090901, end: 20090901
  2. KETOTIFEN FUMARATE [Suspect]
     Indication: EYE PRURITUS
     Dosage: 1 GTT;QD; OPH
     Route: 047
     Dates: start: 20090901, end: 20090901

REACTIONS (5)
  - CONDITION AGGRAVATED [None]
  - EYE PAIN [None]
  - EYE PRURITUS [None]
  - OCULAR HYPERAEMIA [None]
  - VISION BLURRED [None]
